FAERS Safety Report 25339752 (Version 1)
Quarter: 2025Q2

REPORT INFORMATION
  Report Type: Spontaneous
  Country: KR (occurrence: KR)
  Receive Date: 20250521
  Receipt Date: 20250521
  Transmission Date: 20250717
  Serious: Yes (Other)
  Sender: MERCK SHARP & DOHME LLC
  Company Number: KR-009507513-2287474

PATIENT
  Age: 48 Year
  Sex: Male

DRUGS (3)
  1. PEMBROLIZUMAB [Suspect]
     Active Substance: PEMBROLIZUMAB
     Indication: Hypopharyngeal cancer
     Dosage: DOSAGE INTERVAL: 1 DAY
     Dates: start: 20240213, end: 20240222
  2. FLUOROURACIL [Suspect]
     Active Substance: FLUOROURACIL
     Indication: Hypopharyngeal cancer
     Dates: start: 20240213, end: 20240222
  3. CISPLATIN [Suspect]
     Active Substance: CISPLATIN
     Indication: Hypopharyngeal cancer
     Dates: start: 20240213, end: 20240222

REACTIONS (1)
  - Thrombocytopenia [Recovered/Resolved]

NARRATIVE: CASE EVENT DATE: 20240222
